FAERS Safety Report 12604937 (Version 1)
Quarter: 2016Q3

REPORT INFORMATION
  Report Type: Report from Study
  Country: BR (occurrence: BR)
  Receive Date: 20160728
  Receipt Date: 20160728
  Transmission Date: 20161109
  Serious: Yes (Hospitalization, Disabling, Other)
  Sender: FDA-Public Use
  Company Number: BR-ABBVIE-16K-020-1548567-00

PATIENT
  Age: 63 Year
  Sex: Female
  Weight: 45 kg

DRUGS (3)
  1. HUMIRA [Suspect]
     Active Substance: ADALIMUMAB
     Indication: RHEUMATOID ARTHRITIS
     Route: 058
     Dates: start: 20150923, end: 201605
  2. FOLIC ACID. [Concomitant]
     Active Substance: FOLIC ACID
     Indication: BLOOD DISORDER
     Route: 048
     Dates: start: 201510
  3. PREDSIM [Concomitant]
     Active Substance: PREDNISOLONE
     Indication: ARTHRITIS
     Route: 048
     Dates: start: 2014

REACTIONS (11)
  - Immunodeficiency [Unknown]
  - Mobility decreased [Unknown]
  - Urinary tract infection [Unknown]
  - Pain [Recovering/Resolving]
  - Generalised oedema [Unknown]
  - Visceral leishmaniasis [Unknown]
  - Platelet count decreased [Unknown]
  - Diabetes mellitus [Recovered/Resolved]
  - Aphasia [Unknown]
  - Weight decreased [Recovered/Resolved]
  - Hypophagia [Unknown]

NARRATIVE: CASE EVENT DATE: 201601
